FAERS Safety Report 6998601-X (Version None)
Quarter: 2010Q3

REPORT INFORMATION
  Report Type: 
  Country: None (occurrence: None)
  Receive Date: 20100920
  Receipt Date: 20070822
  Transmission Date: 20110219
  Serious: Yes (Other)
  Sender: FDA-Public Use
  Company Number: US-ASTRAZENECA-2007UW05079

PATIENT
  Age: 365 Month
  Sex: Male
  Weight: 155.6 kg

DRUGS (27)
  1. SEROQUEL [Suspect]
     Indication: BIPOLAR DISORDER
     Route: 048
     Dates: start: 20001120
  2. SEROQUEL [Suspect]
     Indication: BIPOLAR I DISORDER
     Route: 048
     Dates: start: 20001120
  3. SEROQUEL [Suspect]
     Indication: SCHIZOPHRENIA
     Route: 048
     Dates: start: 20001120
  4. SEROQUEL [Suspect]
     Route: 048
     Dates: start: 20001201, end: 20010401
  5. SEROQUEL [Suspect]
     Route: 048
     Dates: start: 20001201, end: 20010401
  6. SEROQUEL [Suspect]
     Route: 048
     Dates: start: 20001201, end: 20010401
  7. DILANTIN [Concomitant]
     Indication: CONVULSION
     Dosage: 300 MG - 800 MG
     Dates: start: 20001120
  8. PAXIL [Concomitant]
     Dates: start: 20001120
  9. ZOLOFT [Concomitant]
     Dates: start: 20001120
  10. KLONOPIN [Concomitant]
     Dates: start: 20001120
  11. AMBIEN [Concomitant]
     Dates: start: 20001120
  12. RISPERDAL [Concomitant]
     Dates: start: 20001120
  13. LOXAPINE [Concomitant]
     Dates: start: 20001120
  14. VISTARIL [Concomitant]
     Dates: start: 20001120
  15. ZYPREXA [Concomitant]
     Dates: start: 20001120
  16. CHLORPROMAZINE [Concomitant]
     Dates: start: 20001120
  17. BUSPAR [Concomitant]
     Dates: start: 20050615
  18. ASPIRIN [Concomitant]
     Dates: start: 20050615
  19. NORVASC [Concomitant]
     Dates: start: 20050615
  20. DEPAKENE [Concomitant]
     Dates: start: 20050615
  21. BENADRYL [Concomitant]
     Dosage: 25 MG - 100 MG
     Dates: start: 20001120
  22. ENALAPRIL [Concomitant]
     Dates: start: 20060213
  23. FELODIPINE [Concomitant]
     Dates: start: 20060213
  24. LOVASTATIN [Concomitant]
     Dates: start: 20060213
  25. NORTRIPTYLINE HCL [Concomitant]
     Dates: start: 20060213
  26. ATENOLOL [Concomitant]
     Dates: start: 20060213
  27. HYDROCHLOROTHIAZIDE [Concomitant]
     Dates: start: 20041230

REACTIONS (6)
  - AKATHISIA [None]
  - DIABETES MELLITUS [None]
  - DIABETES MELLITUS INADEQUATE CONTROL [None]
  - HYPOGLYCAEMIA [None]
  - TYPE 1 DIABETES MELLITUS [None]
  - TYPE 2 DIABETES MELLITUS [None]
